FAERS Safety Report 6392167-3 (Version None)
Quarter: 2009Q4

REPORT INFORMATION
  Report Type: 
  Country: None (occurrence: None)
  Receive Date: 20091005
  Receipt Date: 20090921
  Transmission Date: 20100525
  Serious: Yes (Hospitalization, Disabling)
  Sender: FDA-Public Use
  Company Number: 8052461

PATIENT
  Age: 78 Year
  Sex: Female

DRUGS (10)
  1. KEPPRA [Suspect]
     Indication: EPILEPSY
     Dosage: 500 MG 2/D PO
     Route: 048
     Dates: start: 20080101, end: 20080101
  2. KEPPRA [Suspect]
     Indication: EPILEPSY
     Dosage: 250 MG 2/D PO
     Route: 048
     Dates: start: 20080101, end: 20090614
  3. EPITOMAX [Concomitant]
  4. URBANYL [Concomitant]
  5. TANAKAN /01003103/ [Concomitant]
  6. INEXIUM /01479302/ [Concomitant]
  7. TAHOR [Concomitant]
  8. TERCIAN /00759301/ [Concomitant]
  9. NOCTAMID [Concomitant]
  10. SINGULAIR [Concomitant]

REACTIONS (2)
  - DEMENTIA ALZHEIMER'S TYPE [None]
  - DISEASE PROGRESSION [None]
